FAERS Safety Report 13275599 (Version 3)
Quarter: 2019Q2

REPORT INFORMATION
  Report Type: Report from Study
  Country: TR (occurrence: TR)
  Receive Date: 20170228
  Receipt Date: 20190404
  Transmission Date: 20190711
  Serious: Yes (Death, Hospitalization, Other)
  Sender: FDA-Public Use
  Company Number: TR-ACCORD-048537

PATIENT
  Age: 56 Year
  Sex: Female

DRUGS (5)
  1. METHOTREXATE. [Suspect]
     Active Substance: METHOTREXATE
     Indication: PRODUCT USED FOR UNKNOWN INDICATION
  2. MYCOPHENOLIC ACID. [Suspect]
     Active Substance: MYCOPHENOLIC ACID
     Indication: SYSTEMIC LUPUS ERYTHEMATOSUS
     Dates: start: 2012, end: 2014
  3. FILGRASTIM [Concomitant]
     Active Substance: FILGRASTIM
     Indication: PROPHYLAXIS
  4. RITUXIMAB. [Suspect]
     Active Substance: RITUXIMAB
     Indication: PRODUCT USED FOR UNKNOWN INDICATION
  5. TEMOZOLOMIDE. [Suspect]
     Active Substance: TEMOZOLOMIDE
     Indication: PRODUCT USED FOR UNKNOWN INDICATION

REACTIONS (11)
  - Pseudomonas infection [Fatal]
  - Headache [Unknown]
  - B-cell lymphoma [Unknown]
  - Cardiac arrest [Fatal]
  - Central nervous system lymphoma [Unknown]
  - White matter lesion [Unknown]
  - Sepsis [Unknown]
  - Vasogenic cerebral oedema [Unknown]
  - Tumour necrosis [Unknown]
  - Gait disturbance [Unknown]
  - Hemiparesis [Unknown]

NARRATIVE: CASE EVENT DATE: 2014
